FAERS Safety Report 22032284 (Version 2)
Quarter: 2023Q2

REPORT INFORMATION
  Report Type: Report from Study
  Country: US (occurrence: US)
  Receive Date: 20230224
  Receipt Date: 20230408
  Transmission Date: 20230722
  Serious: No
  Sender: FDA-Public Use
  Company Number: US-002147023-NVSC2023US040921

PATIENT
  Age: 36 Year
  Sex: Female

DRUGS (1)
  1. COSENTYX [Suspect]
     Active Substance: SECUKINUMAB
     Indication: Psoriasis
     Dosage: 2 DOSAGE FORM, Q4W
     Route: 058
     Dates: start: 20221130, end: 20230221

REACTIONS (3)
  - Dysphonia [Recovered/Resolved]
  - Upper-airway cough syndrome [Recovered/Resolved]
  - Sinusitis [Recovered/Resolved]

NARRATIVE: CASE EVENT DATE: 20230207
